FAERS Safety Report 19079172 (Version 1)
Quarter: 2021Q1

REPORT INFORMATION
  Report Type: Spontaneous
  Country: JP (occurrence: JP)
  Receive Date: 20210331
  Receipt Date: 20210331
  Transmission Date: 20210420
  Serious: Yes (Hospitalization)
  Sender: FDA-Public Use
  Company Number: JP-ANIPHARMA-2021-JP-000143

PATIENT
  Sex: Male

DRUGS (2)
  1. CASODEX [Suspect]
     Active Substance: BICALUTAMIDE
     Indication: PROSTATE CANCER
     Dosage: 80 MG QD
     Route: 048
     Dates: start: 202010
  2. LH?RH [Concomitant]
     Dosage: UNKNOWN DOSE AND FREQUENC
     Route: 065
     Dates: start: 202010

REACTIONS (4)
  - Hypokalaemia [Unknown]
  - Loss of consciousness [Unknown]
  - Asthenia [Unknown]
  - Off label use [Unknown]

NARRATIVE: CASE EVENT DATE: 202010
